FAERS Safety Report 4638252-5 (Version None)
Quarter: 2005Q2

REPORT INFORMATION
  Report Type: 
  Country: None (occurrence: None)
  Receive Date: 20050415
  Receipt Date: 20050411
  Transmission Date: 20051028
  Serious: Yes (Hospitalization, Other)
  Sender: FDA-Public Use
  Company Number: 2005041603

PATIENT
  Sex: Female

DRUGS (2)
  1. LIPITOR [Suspect]
     Indication: BLOOD CHOLESTEROL
     Dosage: 80 MG (80 MG, 1 IN 1 D), ORAL
     Route: 048
     Dates: start: 19960101
  2. PROCARDIA XL [Suspect]
     Indication: ILL-DEFINED DISORDER
     Dosage: UNKNOWN (90 MG, UNKNOWN), ORAL
     Route: 048
     Dates: start: 20050301

REACTIONS (2)
  - CARDIAC FAILURE CONGESTIVE [None]
  - TRANSPLANT FAILURE [None]
